FAERS Safety Report 8839215 (Version 1)
Quarter: 2012Q4

REPORT INFORMATION
  Report Type: 
  Country: US (occurrence: US)
  Receive Date: 20121015
  Receipt Date: 20121015
  Transmission Date: 20130627
  Serious: Yes (Other)
  Sender: FDA-Public Use
  Company Number: US-SANOFI-AVENTIS-2012SA072727

PATIENT
  Sex: Female

DRUGS (3)
  1. LANTUS SOLOSTAR [Suspect]
     Dosage: Dose:38 unit(s)
     Route: 058
  2. LANTUS SOLOSTAR [Suspect]
     Dosage: Dose:10 unit(s)
     Route: 058
     Dates: start: 20121002, end: 20121002
  3. SOLOSTAR [Suspect]

REACTIONS (5)
  - Syncope [Unknown]
  - Contusion [Unknown]
  - Fall [Unknown]
  - Contusion [Unknown]
  - Drug dose omission [Unknown]
